FAERS Safety Report 6412235-7 (Version None)
Quarter: 2009Q4

REPORT INFORMATION
  Report Type: 
  Country: None (occurrence: None)
  Receive Date: 20091023
  Receipt Date: 20091015
  Transmission Date: 20100525
  Serious: Yes (Other)
  Sender: FDA-Public Use
  Company Number: B0598992A

PATIENT
  Age: 25 Year
  Sex: Female

DRUGS (6)
  1. ZOFRAN [Suspect]
     Indication: DRUG USE FOR UNKNOWN INDICATION
     Dosage: 4MG THREE TIMES PER DAY
     Route: 042
     Dates: start: 20090714, end: 20090715
  2. ENANTYUM [Suspect]
     Route: 042
     Dates: start: 20090714, end: 20090715
  3. TRAMADOL HCL [Suspect]
     Route: 042
     Dates: start: 20090714, end: 20090715
  4. PERFALGAN [Suspect]
     Dosage: 10MGML THREE TIMES PER DAY
     Route: 042
     Dates: start: 20090714, end: 20090715
  5. SYNTOCINON [Suspect]
     Dosage: 10IUML PER DAY
     Route: 042
     Dates: start: 20090714, end: 20090714
  6. UNKNOWN DRUG [Suspect]
     Route: 042
     Dates: start: 20090714, end: 20090714

REACTIONS (3)
  - POLYURIA [None]
  - PROTEINURIA [None]
  - RENAL FAILURE ACUTE [None]
